FAERS Safety Report 15439952 (Version 1)
Quarter: 2018Q3

REPORT INFORMATION
  Report Type: Report from Study
  Country: PL (occurrence: PL)
  Receive Date: 20180928
  Receipt Date: 20180928
  Transmission Date: 20181010
  Serious: Yes (Other)
  Sender: FDA-Public Use
  Company Number: PL-SAKK-2018SA263005AA

PATIENT
  Age: 31 Year
  Sex: Female

DRUGS (2)
  1. HEPARIN [Suspect]
     Active Substance: HEPARIN SODIUM
     Indication: THROMBOSIS
     Dosage: UNK
  2. ENOXAPARIN SODIUM. [Suspect]
     Active Substance: ENOXAPARIN SODIUM
     Indication: THROMBOSIS
     Dosage: UNK

REACTIONS (5)
  - Exposure during pregnancy [Unknown]
  - Heparin-induced thrombocytopenia [Unknown]
  - Factor V Leiden mutation [Unknown]
  - Platelet count decreased [Recovered/Resolved]
  - Disease progression [Unknown]
